FAERS Safety Report 21407013 (Version 1)
Quarter: 2022Q4

REPORT INFORMATION
  Report Type: Spontaneous
  Country: JP (occurrence: JP)
  Receive Date: 20221004
  Receipt Date: 20221004
  Transmission Date: 20230113
  Serious: Yes (Disabling)
  Sender: FDA-Public Use
  Company Number: JP-HALEON-JPCH2022JPN033568

PATIENT

DRUGS (2)
  1. NICOTINELL [Suspect]
     Active Substance: NICOTINE
     Indication: Smoking cessation therapy
     Dosage: UNK
     Route: 050
     Dates: start: 20220901, end: 20220914
  2. NICOTINELL [Suspect]
     Active Substance: NICOTINE
     Dosage: UNK
     Route: 050
     Dates: start: 20220915, end: 20220928

REACTIONS (2)
  - Nausea [Not Recovered/Not Resolved]
  - Therapy cessation [Unknown]

NARRATIVE: CASE EVENT DATE: 20220901
